FAERS Safety Report 11394230 (Version 1)
Quarter: 2015Q3

REPORT INFORMATION
  Report Type: Spontaneous
  Country: US (occurrence: None)
  Receive Date: 20150817
  Receipt Date: 20150817
  Transmission Date: 20151125
  Serious: Yes (Hospitalization)
  Sender: FDA-Public Use
  Company Number: None

PATIENT
  Age: 56 Year
  Sex: Female
  Weight: 65.77 kg

DRUGS (7)
  1. GABAPENTIN. [Concomitant]
     Active Substance: GABAPENTIN
  2. VITAMIN D [Concomitant]
     Active Substance: CHOLECALCIFEROL
  3. STOOL SOFTENER [Concomitant]
     Active Substance: DOCUSATE CALCIUM
  4. BUPROPION. [Concomitant]
     Active Substance: BUPROPION
  5. CACLIUM [Concomitant]
  6. MTV [Concomitant]
  7. ALENDRONATE [Suspect]
     Active Substance: ALENDRONATE SODIUM
     Indication: OSTEOPOROSIS
     Dosage: 6 + YEARS?1 PILL
     Route: 048

REACTIONS (4)
  - Weight bearing difficulty [None]
  - Bone pain [None]
  - Femur fracture [None]
  - Spinal disorder [None]

NARRATIVE: CASE EVENT DATE: 20150522
